FAERS Safety Report 11996048 (Version 1)
Quarter: 2016Q1

REPORT INFORMATION
  Report Type: Spontaneous
  Country: CA (occurrence: CA)
  Receive Date: 20160203
  Receipt Date: 20160203
  Transmission Date: 20160526
  Serious: Yes (Hospitalization, Other)
  Sender: FDA-Public Use
  Company Number: CA-SA-2016SA015652

PATIENT
  Age: 67 Year
  Sex: Female

DRUGS (19)
  1. ARAVA [Suspect]
     Active Substance: LEFLUNOMIDE
     Indication: RHEUMATOID ARTHRITIS
     Dosage: DOSE:2.0
     Route: 065
     Dates: start: 20090114
  2. ARAVA [Suspect]
     Active Substance: LEFLUNOMIDE
     Indication: RHEUMATOID ARTHRITIS
     Dosage: DOSE:2.0
     Route: 048
     Dates: start: 20150630
  3. RITUXAN [Concomitant]
     Active Substance: RITUXIMAB
     Dates: start: 20130131
  4. PREDNISON [Concomitant]
     Active Substance: PREDNISONE
     Dates: start: 20100323
  5. CELEBREX [Concomitant]
     Active Substance: CELECOXIB
     Dates: start: 20130530
  6. VITAMIN D [Concomitant]
     Active Substance: CHOLECALCIFEROL
     Dates: start: 20131001
  7. ENBREL [Concomitant]
     Active Substance: ETANERCEPT
     Dates: start: 200702
  8. ACTONEL [Concomitant]
     Active Substance: RISEDRONATE SODIUM
  9. BIOTIN [Concomitant]
     Active Substance: BIOTIN
     Route: 048
  10. RANITIDINE HYDROCHLORIDE. [Concomitant]
     Active Substance: RANITIDINE HYDROCHLORIDE
     Route: 048
  11. REMICADE [Concomitant]
     Active Substance: INFLIXIMAB
     Dates: start: 200904
  12. ASPIRIN. [Concomitant]
     Active Substance: ASPIRIN
  13. ORENCIA [Concomitant]
     Active Substance: ABATACEPT
  14. CELEBREX [Concomitant]
     Active Substance: CELECOXIB
     Dates: start: 20150630
  15. BION TEARS [Concomitant]
     Active Substance: DEXTRAN 70\HYPROMELLOSE 2910 (4000 MPA.S)
     Dosage: EYEDROPS: 01-03%
  16. SYMBICORT [Concomitant]
     Active Substance: BUDESONIDE\FORMOTEROL FUMARATE DIHYDRATE
  17. METHOTREXATE [Concomitant]
     Active Substance: METHOTREXATE
     Route: 048
     Dates: start: 1988
  18. PLAQUENIL [Concomitant]
     Active Substance: HYDROXYCHLOROQUINE SULFATE
     Route: 048
     Dates: start: 1980
  19. PROLIA [Concomitant]
     Active Substance: DENOSUMAB
     Indication: ARTHRALGIA
     Dosage: EVERY 6 MONTHS
     Route: 058

REACTIONS (3)
  - Musculoskeletal pain [Unknown]
  - Fatigue [Unknown]
  - Rheumatoid arthritis [Unknown]

NARRATIVE: CASE EVENT DATE: 2015
